FAERS Safety Report 18292287 (Version 2)
Quarter: 2020Q4

REPORT INFORMATION
  Report Type: Spontaneous
  Country: US (occurrence: US)
  Receive Date: 20200922
  Receipt Date: 20201214
  Transmission Date: 20210113
  Serious: Yes (Hospitalization, Other)
  Sender: FDA-Public Use
  Company Number: US-HORIZON-PRO-0219-2020

PATIENT
  Age: 30 Year
  Sex: Male

DRUGS (4)
  1. PROCYSBI [Suspect]
     Active Substance: CYSTEAMINE BITARTRATE
     Indication: CYSTINOSIS
     Dosage: 1000MG TWICE DAILY 2 SEPARATED DOSES
  2. FLONASE [Concomitant]
     Active Substance: FLUTICASONE PROPIONATE
     Indication: HYPERSENSITIVITY
  3. LISINOPRIL. [Concomitant]
     Active Substance: LISINOPRIL
  4. ELIQUIS [Suspect]
     Active Substance: APIXABAN
     Indication: THROMBOSIS

REACTIONS (31)
  - Vertigo [Unknown]
  - Thrombosis [Not Recovered/Not Resolved]
  - Contusion [Unknown]
  - Anxiety [Unknown]
  - Depression [Unknown]
  - Pruritus [Unknown]
  - Fistula [Not Recovered/Not Resolved]
  - Anaemia [Unknown]
  - Alopecia [Unknown]
  - Skin exfoliation [Unknown]
  - Arthralgia [Unknown]
  - Product administration error [Unknown]
  - Blood potassium increased [Unknown]
  - Anal haemorrhage [Unknown]
  - Bone pain [Unknown]
  - Skin infection [Unknown]
  - Dry skin [Unknown]
  - Goitre [Unknown]
  - Lipids increased [Unknown]
  - Insomnia [Unknown]
  - Delusion [Unknown]
  - Nausea [Unknown]
  - Blood phosphorus increased [Unknown]
  - Hallucinations, mixed [Unknown]
  - Fibromyalgia [Unknown]
  - Myalgia [Unknown]
  - Blood magnesium increased [Unknown]
  - Vision blurred [Unknown]
  - Musculoskeletal stiffness [Unknown]
  - Ear congestion [Unknown]
  - Lacrimation increased [Unknown]

NARRATIVE: CASE EVENT DATE: 202008
